FAERS Safety Report 16678709 (Version 1)
Quarter: 2019Q3

REPORT INFORMATION
  Report Type: Spontaneous
  Country: US (occurrence: US)
  Receive Date: 20190806
  Receipt Date: 20190806
  Transmission Date: 20191004
  Serious: No
  Sender: FDA-Public Use
  Company Number: None

PATIENT
  Age: 23 Year
  Sex: Female
  Weight: 130.5 kg

DRUGS (11)
  1. EMGALITY [Suspect]
     Active Substance: GALCANEZUMAB-GNLM
     Indication: MIGRAINE
     Dosage: ?          QUANTITY:1 INJECTION(S);OTHER FREQUENCY:1 PER MONTH;?          THERAPY ONGOING: Y
     Route: 030
     Dates: start: 20190705, end: 20190805
  2. ZOFRAN (ONADESTERON) [Concomitant]
  3. VITAMIN B12 [Concomitant]
     Active Substance: CYANOCOBALAMIN
  4. NULEV (HYOSCYAINE SULFATE) [Concomitant]
  5. CYMBALTA (DULOXETINE HCI) [Concomitant]
  6. LOW DOSE NALTREXONE [Concomitant]
     Active Substance: NALTREXONE
  7. LITHIUM CARBONATE. [Concomitant]
     Active Substance: LITHIUM CARBONATE
  8. XANAX [Concomitant]
     Active Substance: ALPRAZOLAM
  9. VISTIRIL (HYDROXIZINE PAMOATE) [Concomitant]
  10. CELEBREX [Concomitant]
     Active Substance: CELECOXIB
  11. LYRICA [Concomitant]
     Active Substance: PREGABALIN

REACTIONS (7)
  - Diarrhoea [None]
  - Irritable bowel syndrome [None]
  - Decreased appetite [None]
  - Abdominal distension [None]
  - Weight decreased [None]
  - Abdominal rigidity [None]
  - Nausea [None]

NARRATIVE: CASE EVENT DATE: 20190705
